FAERS Safety Report 20485586 (Version 1)
Quarter: 2022Q1

REPORT INFORMATION
  Report Type: Spontaneous
  Country: US (occurrence: None)
  Receive Date: 20220217
  Receipt Date: 20220217
  Transmission Date: 20220423
  Serious: Yes (Other)
  Sender: FDA-Public Use
  Company Number: None

PATIENT
  Age: 67 Year
  Sex: Female
  Weight: 64.4 kg

DRUGS (2)
  1. LUTATHERA [Suspect]
     Active Substance: LUTETIUM OXODOTREOTIDE LU-177
     Indication: Neuroendocrine carcinoma
     Dosage: OTHER FREQUENCY : Q 8 WEEKS;?
     Route: 042
     Dates: start: 20211130, end: 20211130
  2. TELOTRISTAT [Suspect]
     Active Substance: TELOTRISTAT
     Indication: Neuroendocrine tumour
     Dosage: FREQUENCY : 3 TIMES A DAY;?
     Route: 048
     Dates: start: 20211130, end: 20220125

REACTIONS (5)
  - Neutropenia [None]
  - Lymphopenia [None]
  - Leukopenia [None]
  - Anaemia [None]
  - Thrombocytopenia [None]

NARRATIVE: CASE EVENT DATE: 20220216
